FAERS Safety Report 20423595 (Version 2)
Quarter: 2022Q1

REPORT INFORMATION
  Report Type: Spontaneous
  Country: US (occurrence: US)
  Receive Date: 20220203
  Receipt Date: 20220218
  Transmission Date: 20220424
  Serious: Yes (Hospitalization)
  Sender: FDA-Public Use
  Company Number: US-TEVA-2022-US-2003313

PATIENT
  Age: 65 Year
  Sex: Male

DRUGS (2)
  1. PRIMIDONE [Interacting]
     Active Substance: PRIMIDONE
     Indication: Tremor
     Route: 065
  2. APIXABAN [Interacting]
     Active Substance: APIXABAN
     Indication: Deep vein thrombosis
     Route: 065

REACTIONS (2)
  - Anticoagulation drug level decreased [Recovering/Resolving]
  - Drug interaction [Unknown]
